FAERS Safety Report 7928770-6 (Version None)
Quarter: 2011Q4

REPORT INFORMATION
  Report Type: 
  Country: None (occurrence: None)
  Receive Date: 20111118
  Receipt Date: 20111116
  Transmission Date: 20120403
  Serious: Yes (Hospitalization)
  Sender: FDA-Public Use
  Company Number: US-BAYER-2011-111296

PATIENT
  Age: 81 Year
  Sex: Male
  Weight: 109 kg

DRUGS (3)
  1. MESTINON [Concomitant]
  2. ASPIRIN [Suspect]
     Dosage: 1 DF, QD
     Route: 048
  3. IMURAN [Concomitant]

REACTIONS (5)
  - HAEMATEMESIS [None]
  - MOUTH HAEMORRHAGE [None]
  - NAUSEA [None]
  - RECTAL HAEMORRHAGE [None]
  - DIARRHOEA HAEMORRHAGIC [None]
